FAERS Safety Report 5262365-0 (Version None)
Quarter: 2007Q1

REPORT INFORMATION
  Report Type: 
  Country: None (occurrence: None)
  Receive Date: 20070309
  Receipt Date: 20070309
  Transmission Date: 20070707
  Serious: Yes (Hospitalization)
  Sender: FDA-Public Use
  Company Number: None

PATIENT
  Sex: Female
  Weight: 49.43 kg

DRUGS (8)
  1. CISPLATIN [Suspect]
     Dosage: 75 MG
  2. TOPOTECAN [Suspect]
     Dosage: 3.3 MG
  3. DIPHENHYDRAMINE HCL [Concomitant]
  4. FENTANYL TRANSDERMAL SYSTEM [Concomitant]
  5. MARINOL [Concomitant]
  6. METOCLOPRAMIDE [Concomitant]
  7. MORPHINE [Concomitant]
  8. ONDANSETRON [Concomitant]

REACTIONS (3)
  - NEUTROPENIA [None]
  - PNEUMONIA [None]
  - WHITE BLOOD CELL COUNT DECREASED [None]
